FAERS Safety Report 5586890-8 (Version None)
Quarter: 2008Q1

REPORT INFORMATION
  Report Type: 
  Country: None (occurrence: None)
  Receive Date: 20080108
  Receipt Date: 20080108
  Transmission Date: 20080703
  Serious: Yes (Other)
  Sender: FDA-Public Use
  Company Number: None

PATIENT
  Sex: Female
  Weight: 61.2356 kg

DRUGS (1)
  1. PROZAC [Suspect]
     Dates: start: 19940509, end: 19940703

REACTIONS (3)
  - AGGRESSION [None]
  - ANGER [None]
  - FEELING HOT [None]
